FAERS Safety Report 10278802 (Version 1)
Quarter: 2014Q3

REPORT INFORMATION
  Report Type: Report from Study
  Country: US (occurrence: US)
  Receive Date: 20140705
  Receipt Date: 20140705
  Transmission Date: 20150326
  Serious: Yes (Other)
  Sender: FDA-Public Use
  Company Number: US-ALEXION-A201202850

PATIENT
  Sex: Female

DRUGS (3)
  1. SOLIRIS [Suspect]
     Active Substance: ECULIZUMAB
     Indication: PAROXYSMAL NOCTURNAL HAEMOGLOBINURIA
     Dosage: UNK
     Route: 042
  2. EXJADE [Concomitant]
     Active Substance: DEFERASIROX
  3. FERRIPROX [Concomitant]
     Active Substance: DEFERIPRONE

REACTIONS (4)
  - Transfusion [Unknown]
  - Reticulocyte count increased [Unknown]
  - Aplastic anaemia [Unknown]
  - Blood iron increased [Unknown]
